FAERS Safety Report 11718142 (Version 1)
Quarter: 2015Q4

REPORT INFORMATION
  Report Type: Spontaneous
  Country: ES (occurrence: ES)
  Receive Date: 20151110
  Receipt Date: 20151110
  Transmission Date: 20160304
  Serious: Yes (Other)
  Sender: FDA-Public Use
  Company Number: ES-WATSON-2015-12607

PATIENT
  Age: 56 Year
  Sex: Female

DRUGS (5)
  1. KENTERA (WATSON LABORATORIES) [Suspect]
     Active Substance: OXYBUTYNIN
     Indication: NEUROGENIC BLADDER
     Dosage: 3.9 MG/DAY PATCHES, 1 PATCH/3 DAYS
     Route: 062
     Dates: start: 201412
  2. ZANIPRESS [Concomitant]
     Active Substance: ENALAPRIL MALEATE\LERCANIDIPINE HYDROCHLORIDE
     Indication: HYPERTENSION
     Dosage: 1 TABLET, DAILY
     Route: 048
  3. BETMIGA [Suspect]
     Active Substance: MIRABEGRON
     Indication: NEUROGENIC BLADDER
     Dosage: 50 MG (1 TABLET), DAILY
     Route: 048
     Dates: start: 201412
  4. NEBIVOLOL STADA [Concomitant]
     Indication: HYPERTENSION
     Dosage: 5 MG (1 TABLET), DAILY
     Route: 048
     Dates: start: 2012
  5. LIORESAL [Concomitant]
     Active Substance: BACLOFEN
     Indication: MULTIPLE SCLEROSIS
     Dosage: 10 MG (1 TABLET), DAILY
     Route: 048

REACTIONS (2)
  - Retinal vein thrombosis [Recovered/Resolved with Sequelae]
  - Hypertension [Recovered/Resolved]

NARRATIVE: CASE EVENT DATE: 201412
